FAERS Safety Report 6828047-6 (Version None)
Quarter: 2010Q3

REPORT INFORMATION
  Report Type: 
  Country: None (occurrence: None)
  Receive Date: 20100709
  Receipt Date: 20100701
  Transmission Date: 20110219
  Serious: Yes (Other)
  Sender: FDA-Public Use
  Company Number: B0661460A

PATIENT
  Age: 89 Year
  Sex: Female

DRUGS (2)
  1. REQUIP [Suspect]
     Indication: PRODUCT USED FOR UNKNOWN INDICATION
     Dosage: .25MG FOUR TIMES PER DAY
     Route: 048
     Dates: start: 20100409, end: 20100509
  2. REQUIP [Suspect]
     Dosage: 1MG TWICE PER DAY
     Route: 048
     Dates: start: 20100510, end: 20100611

REACTIONS (2)
  - MOTION SICKNESS [None]
  - SUDDEN ONSET OF SLEEP [None]
